FAERS Safety Report 9007495 (Version 1)
Quarter: 2013Q1

REPORT INFORMATION
  Report Type: Spontaneous
  Country: US (occurrence: US)
  Receive Date: 20130111
  Receipt Date: 20130111
  Transmission Date: 20140127
  Serious: Yes (Other)
  Sender: FDA-Public Use
  Company Number: US-009507513-1301USA003280

PATIENT
  Age: 11 Year
  Sex: Male

DRUGS (4)
  1. MONTELUKAST SODIUM [Suspect]
     Route: 048
  2. FLUTICASONE PROPIONATE [Suspect]
     Route: 045
  3. FLUTICASONE PROPIONATE [Suspect]
  4. ALBUTEROL [Concomitant]

REACTIONS (1)
  - Purpura [Unknown]
